FAERS Safety Report 8808949 (Version 6)
Quarter: 2013Q3

REPORT INFORMATION
  Report Type: Spontaneous
  Country: US (occurrence: US)
  Receive Date: 20120926
  Receipt Date: 20130701
  Transmission Date: 20140515
  Serious: Yes (Hospitalization)
  Sender: FDA-Public Use
  Company Number: US-ASTELLAS-2012US007991

PATIENT
  Age: 70 Year
  Sex: Male
  Weight: 111 kg

DRUGS (6)
  1. VESICARE [Suspect]
     Indication: HYPERTONIC BLADDER
     Dosage: 5 MG, UID/QD
     Route: 048
     Dates: start: 20120719, end: 2013
  2. VESICARE [Suspect]
     Indication: RENAL DISORDER
     Dosage: 10 MG, UID/QD
     Route: 048
  3. AMLODIPINE [Concomitant]
     Indication: BLOOD PRESSURE
     Dosage: 100 MG, UID/QD
     Route: 048
     Dates: start: 2007
  4. ARICEPT [Concomitant]
     Indication: DEMENTIA ALZHEIMER^S TYPE
     Dosage: 5 MG, UID/QD
     Route: 048
     Dates: start: 201202
  5. ASPIRIN [Concomitant]
     Indication: DEMENTIA ALZHEIMER^S TYPE
     Dosage: 81 MG, UID/QD
     Route: 048
     Dates: start: 201209
  6. FLOMAX                             /01280302/ [Concomitant]
     Indication: BLADDER DISORDER
     Dosage: 5 MG, UID/QD
     Route: 048
     Dates: start: 201203

REACTIONS (4)
  - Off label use [Unknown]
  - Hospitalisation [Unknown]
  - Cardiac failure congestive [Unknown]
  - Renal failure chronic [Not Recovered/Not Resolved]
